FAERS Safety Report 7595089-5 (Version None)
Quarter: 2011Q3

REPORT INFORMATION
  Report Type: 
  Country: None (occurrence: None)
  Receive Date: 20110707
  Receipt Date: 20110705
  Transmission Date: 20111222
  Serious: Yes (Other)
  Sender: FDA-Public Use
  Company Number: US-PFIZER INC-2011150332

PATIENT
  Sex: Female
  Weight: 87 kg

DRUGS (5)
  1. PHENOBARBITAL [Concomitant]
     Indication: CONVULSION
     Dosage: 60 MG, 2X/DAY
  2. DILANTIN [Suspect]
     Indication: CONVULSION
     Dosage: UNK
     Route: 048
     Dates: start: 19750101
  3. TOPROL-XL [Concomitant]
     Indication: HYPERTENSION
     Dosage: 100 MG, DAILY
  4. DILANTIN [Suspect]
     Dosage: 100 MG, 2X/DAY
     Route: 048
  5. LISINOPRIL [Concomitant]
     Indication: HYPERTENSION
     Dosage: 40 MG, DAILY

REACTIONS (1)
  - PERNICIOUS ANAEMIA [None]
